FAERS Safety Report 9733297 (Version 1)
Quarter: 2013Q4

REPORT INFORMATION
  Report Type: Spontaneous
  Country: US (occurrence: None)
  Receive Date: 20131204
  Receipt Date: 20131204
  Transmission Date: 20140711
  Serious: Yes (Hospitalization)
  Sender: FDA-Public Use
  Company Number: None

PATIENT
  Age: 72 Year
  Sex: Male
  Weight: 89.4 kg

DRUGS (7)
  1. RITUXIMAB [Suspect]
  2. PENTOSTATIN [Suspect]
  3. CYCLOPHOSPHAMIDE [Suspect]
  4. BACTRIM DS [Concomitant]
  5. TENOFOVIR [Concomitant]
  6. VALTREX [Concomitant]
  7. CIPROFLOXACIN [Concomitant]

REACTIONS (1)
  - Neutropenia [None]
